FAERS Safety Report 4287896-1 (Version None)
Quarter: 2004Q1

REPORT INFORMATION
  Report Type: 
  Country: None (occurrence: None)
  Receive Date: 20040209
  Receipt Date: 20031024
  Transmission Date: 20041129
  Serious: No
  Sender: FDA-Public Use
  Company Number: US-GLAXOSMITHKLINE-A0431560A

PATIENT
  Age: 63 Year
  Sex: Female

DRUGS (2)
  1. PAXIL [Suspect]
     Dosage: 37.5MG PER DAY
     Route: 048
     Dates: start: 20020201, end: 20030801
  2. BOTOX INJECTION [Concomitant]

REACTIONS (7)
  - ANHEDONIA [None]
  - FOOD CRAVING [None]
  - HEPATIC ENZYME INCREASED [None]
  - HOT FLUSH [None]
  - LETHARGY [None]
  - OEDEMA PERIPHERAL [None]
  - WEIGHT INCREASED [None]
